FAERS Safety Report 11319455 (Version 2)
Quarter: 2015Q3

REPORT INFORMATION
  Report Type: Spontaneous
  Country: IE (occurrence: None)
  Receive Date: 20150727
  Receipt Date: 20150831
  Transmission Date: 20151125
  Serious: Yes (Death, Life-Threatening, Hospitalization)
  Sender: FDA-Public Use
  Company Number: KAD201507-002402

PATIENT
  Age: 58 Year
  Sex: Male
  Weight: 81 kg

DRUGS (10)
  1. METHADONE [Concomitant]
     Active Substance: METHADONE HYDROCHLORIDE
  2. EXVIERA (DASABUVIR) [Suspect]
     Active Substance: DASABUVIR
     Indication: HEPATITIS C
     Dosage: TABLET, 250 MG, TWO IN ONE DAY (500 MG), ORAL
     Route: 048
     Dates: start: 20150602, end: 20150612
  3. VIEKIRAX (OMBITASVIR, PARITAPREVIR, RITONAVIR) [Suspect]
     Active Substance: OMBITASVIR\PARITAPREVIR\RITONAVIR
     Indication: HEPATITIS C
     Dosage: TABLET, 25/150/100 MG, ORAL
     Route: 048
     Dates: start: 20150602, end: 20150612
  4. TIVICAY (DOLUTEGRAVIR SODIUM) [Concomitant]
  5. HEPATITIS A VACCINATION (HEPATITIS A VACCINE) [Concomitant]
  6. DIAZEPAM. [Concomitant]
     Active Substance: DIAZEPAM
  7. RIBAVIRIN (RIBAVIRIN) [Suspect]
     Active Substance: RIBAVIRIN
     Indication: HEPATITIS C
     Dosage: TABLET, 600 MG, TWO IN ONE DAY (1200 MG), ORAL
     Route: 048
     Dates: start: 20150602, end: 20150612
  8. TRUVADA [Concomitant]
     Active Substance: EMTRICITABINE\TENOFOVIR DISOPROXIL FUMARATE
  9. HEPATITIS B VACCINATION (HEPATITIS B VACCINE) [Concomitant]
  10. ZOPICLONE [Concomitant]
     Active Substance: ZOPICLONE

REACTIONS (3)
  - Acute hepatic failure [None]
  - Hepatic cirrhosis [None]
  - Drug-induced liver injury [None]

NARRATIVE: CASE EVENT DATE: 20150616
